FAERS Safety Report 7106237-5 (Version None)
Quarter: 2010Q4

REPORT INFORMATION
  Report Type: 
  Country: None (occurrence: None)
  Receive Date: 20101116
  Receipt Date: 20101103
  Transmission Date: 20110411
  Serious: Yes (Hospitalization, Other)
  Sender: FDA-Public Use
  Company Number: US-ELI_LILLY_AND_COMPANY-US201009004675

PATIENT
  Sex: Male

DRUGS (9)
  1. ZYPREXA [Suspect]
     Indication: SCHIZOPHRENIA, PARANOID TYPE
     Dosage: 10 MG, UNK
     Route: 048
     Dates: start: 20011218
  2. ZYPREXA [Suspect]
     Dosage: 15 MG, UNK
     Route: 048
     Dates: start: 20021126
  3. ZYPREXA [Suspect]
     Dosage: 20 MG, UNK
     Dates: start: 20090101
  4. ZYPREXA ZYDIS [Suspect]
     Indication: SCHIZOPHRENIA, RESIDUAL TYPE
     Dosage: 20 MG, UNK
     Dates: start: 20091014
  5. ZYPREXA ZYDIS [Suspect]
     Dosage: 15 MG, UNK
  6. ZYPREXA ZYDIS [Suspect]
     Dosage: 10 MG, UNK
  7. VISTARIL [Concomitant]
     Indication: SLEEP DISORDER
     Dosage: 25 MG, UNK
     Route: 048
  8. ATARAX [Concomitant]
     Dosage: 25 MG, UNK
  9. OMEPRAZOLE [Concomitant]

REACTIONS (4)
  - DYSPHAGIA [None]
  - GASTROINTESTINAL HAEMORRHAGE [None]
  - GASTROINTESTINAL MOTILITY DISORDER [None]
  - GASTROINTESTINAL ULCER [None]
